FAERS Safety Report 4787191-8 (Version None)
Quarter: 2005Q4

REPORT INFORMATION
  Report Type: 
  Country: None (occurrence: None)
  Receive Date: 20051004
  Receipt Date: 20050922
  Transmission Date: 20060501
  Serious: Yes (Hospitalization)
  Sender: FDA-Public Use
  Company Number: TW-BRISTOL-MYERS SQUIBB COMPANY-13127121

PATIENT
  Age: 42 Year
  Sex: Male

DRUGS (8)
  1. ABILIFY [Suspect]
     Indication: SCHIZOPHRENIA
     Route: 048
     Dates: start: 20050610, end: 20050905
  2. FLUPHENAZINE [Suspect]
     Indication: IRRITABILITY
     Route: 042
     Dates: start: 20050824, end: 20050824
  3. QUETIAPINE FUMARATE [Concomitant]
     Dates: end: 20050905
  4. TRIHEXYPHENIDYL HCL [Concomitant]
     Route: 048
     Dates: end: 20050905
  5. TRAZODONE HCL [Concomitant]
     Dates: end: 20050905
  6. LORAZEPAM [Concomitant]
     Route: 048
     Dates: end: 20050905
  7. MIDAZOLAM [Concomitant]
     Route: 048
     Dates: end: 20050905
  8. ESTAZOLAM [Concomitant]
     Route: 048
     Dates: end: 20050905

REACTIONS (3)
  - EXTRAPYRAMIDAL DISORDER [None]
  - PARKINSONISM [None]
  - URINARY RETENTION [None]
